FAERS Safety Report 9485368 (Version 2)
Quarter: 2013Q3

REPORT INFORMATION
  Report Type: Spontaneous
  Country: US (occurrence: US)
  Receive Date: 20130828
  Receipt Date: 20130829
  Transmission Date: 20140515
  Serious: Yes (Hospitalization)
  Sender: FDA-Public Use
  Company Number: US-ROCHE-1266276

PATIENT
  Age: 59 Year
  Sex: Female

DRUGS (2)
  1. PEGASYS [Suspect]
     Indication: HEPATITIS C
     Route: 058
     Dates: start: 201305
  2. RIBAVIRIN [Suspect]
     Indication: HEPATITIS C
     Dosage: TAKE 2 CAPS PO Q AM AND 3 CAPS PO Q PM
     Route: 048
     Dates: start: 201305

REACTIONS (5)
  - Fluid retention [Recovering/Resolving]
  - Coagulopathy [Unknown]
  - Blood magnesium decreased [Recovering/Resolving]
  - Blood potassium decreased [Unknown]
  - Malaise [Unknown]
